FAERS Safety Report 23851359 (Version 1)
Quarter: 2024Q2

REPORT INFORMATION
  Report Type: Spontaneous
  Country: US (occurrence: US)
  Receive Date: 20240514
  Receipt Date: 20240514
  Transmission Date: 20240716
  Serious: Yes (Hospitalization, Other)
  Sender: FDA-Public Use
  Company Number: US-OPELLA-2024OHG015606

PATIENT
  Age: 33 Year
  Sex: Male

DRUGS (1)
  1. UNISOM SLEEPGELS NIGHTTIME SLEEP-AID [Suspect]
     Active Substance: DIPHENHYDRAMINE HYDROCHLORIDE
     Indication: Suicide attempt
     Dosage: 50-TABLET BOTTLE
     Route: 065

REACTIONS (12)
  - Suicide attempt [Unknown]
  - Delirium [Recovered/Resolved]
  - Toxicity to various agents [Unknown]
  - Sinus tachycardia [Unknown]
  - Mydriasis [Unknown]
  - Dry skin [Unknown]
  - Agitation [Unknown]
  - Confusional state [Unknown]
  - Attention deficit hyperactivity disorder [Unknown]
  - Speech disorder [Unknown]
  - Abnormal behaviour [Unknown]
  - Intentional overdose [Unknown]
